FAERS Safety Report 18040788 (Version 1)
Quarter: 2020Q3

REPORT INFORMATION
  Report Type: Spontaneous
  Country: FR (occurrence: FR)
  Receive Date: 20200717
  Receipt Date: 20200717
  Transmission Date: 20201103
  Serious: Yes (Hospitalization)
  Sender: FDA-Public Use
  Company Number: FR-CELGENEUS-FRA-20200704081

PATIENT
  Age: 81 Year
  Sex: Female
  Weight: 80 kg

DRUGS (6)
  1. AZANTAC [Concomitant]
     Active Substance: RANITIDINE HYDROCHLORIDE
     Indication: PREMEDICATION
     Dosage: IN TOTAL
     Route: 042
     Dates: start: 20200513, end: 20200513
  2. METHYLPREDNISOLONE MERCK [Concomitant]
     Active Substance: METHYLPREDNISOLONE
     Indication: PREMEDICATION
     Dosage: IN TOTAL
     Route: 042
     Dates: start: 20200513, end: 20200513
  3. ABRAXANE [Suspect]
     Active Substance: PACLITAXEL
     Indication: OVARIAN EPITHELIAL CANCER
     Route: 042
     Dates: start: 20200513, end: 20200513
  4. ABRAXANE [Suspect]
     Active Substance: PACLITAXEL
     Indication: OFF LABEL USE
  5. POLARAMINE [Concomitant]
     Active Substance: DEXCHLORPHENIRAMINE MALEATE
     Indication: PREMEDICATION
     Dosage: IN TOTAL
     Route: 042
     Dates: start: 20200513, end: 20200513
  6. ONDANSETRON ACCREDO [Concomitant]
     Indication: PREMEDICATION
     Dosage: IN TOTAL
     Route: 042
     Dates: start: 20200513, end: 20200513

REACTIONS (3)
  - Oxygen saturation decreased [Recovered/Resolved]
  - Hypotension [Recovered/Resolved]
  - Infusion related reaction [Recovered/Resolved]

NARRATIVE: CASE EVENT DATE: 20200513
